FAERS Safety Report 22072678 (Version 1)
Quarter: 2023Q1

REPORT INFORMATION
  Report Type: Spontaneous
  Country: SE (occurrence: SE)
  Receive Date: 20230308
  Receipt Date: 20230308
  Transmission Date: 20230418
  Serious: Yes (Hospitalization, Other)
  Sender: FDA-Public Use
  Company Number: None

PATIENT

DRUGS (3)
  1. LAMICTAL [Suspect]
     Active Substance: LAMOTRIGINE
     Indication: Product used for unknown indication
     Dosage: 4200 MG (1 TOTAL, 21 ST LAMICTAL 200 MG)
     Route: 048
     Dates: start: 20190915, end: 20190915
  2. ATARAX [Suspect]
     Active Substance: HYDROXYZINE HYDROCHLORIDE
     Indication: Product used for unknown indication
     Dosage: 700 MG (1 TOTAL, 28 PIECES OF ATARAX 25 MG)
     Route: 048
     Dates: start: 20190915, end: 20190915
  3. VENLAFAXINE [Suspect]
     Active Substance: VENLAFAXINE HYDROCHLORIDE
     Indication: Product used for unknown indication
     Dosage: 15750 MG (1 TOTAL, VENLAFAXINE 150 MG, 105 TAB)
     Route: 048
     Dates: start: 20190915, end: 20190915

REACTIONS (4)
  - Intentional self-injury [Unknown]
  - Seizure [Unknown]
  - Clonus [Unknown]
  - Intentional overdose [Unknown]

NARRATIVE: CASE EVENT DATE: 20190915
